FAERS Safety Report 6658011-1 (Version None)
Quarter: 2010Q1

REPORT INFORMATION
  Report Type: 
  Country: None (occurrence: None)
  Receive Date: 20100330
  Receipt Date: 20100317
  Transmission Date: 20100710
  Serious: Yes (Other)
  Sender: FDA-Public Use
  Company Number: MX-ELI_LILLY_AND_COMPANY-MX201003001525

PATIENT
  Age: 66 Year
  Sex: Male
  Weight: 67 kg

DRUGS (6)
  1. HUMALOG [Suspect]
     Dosage: UNK, UNKNOWN
     Route: 065
  2. HUMULIN N [Suspect]
     Indication: TYPE 2 DIABETES MELLITUS
     Dosage: 25 UL, EACH MORNING
     Route: 058
     Dates: start: 20050101
  3. HUMULIN N [Suspect]
     Dosage: 7 IU, EACH EVENING
     Route: 058
     Dates: start: 20050101
  4. HUMULIN N [Suspect]
     Dosage: 30 IU, EACH MORNING
     Route: 058
     Dates: start: 20100101
  5. HUMULIN N [Suspect]
     Dosage: 5 IU, EACH EVENING
     Route: 058
     Dates: start: 20100101
  6. PENTOXIFYLLINE [Concomitant]
     Dosage: UNK, UNKNOWN
     Route: 065
     Dates: start: 20090901

REACTIONS (4)
  - DIABETIC NEUROPATHY [None]
  - DRUG INEFFECTIVE [None]
  - HYPERGLYCAEMIA [None]
  - NECROSIS [None]
